FAERS Safety Report 17298187 (Version 1)
Quarter: 2020Q1

REPORT INFORMATION
  Report Type: Spontaneous
  Country: US (occurrence: US)
  Receive Date: 20200121
  Receipt Date: 20200121
  Transmission Date: 20200409
  Serious: Yes (Hospitalization)
  Sender: FDA-Public Use
  Company Number: US-BAUSCH-BL-2020-000808

PATIENT
  Age: 21 Year
  Sex: Female

DRUGS (2)
  1. VENLAFAXINE [Suspect]
     Active Substance: VENLAFAXINE HYDROCHLORIDE
     Indication: SUICIDE ATTEMPT
     Dosage: EXTENDED RELEASE (HIGH DOSE)
     Route: 065
  2. SERTRALINE [Suspect]
     Active Substance: SERTRALINE HYDROCHLORIDE
     Indication: SUICIDE ATTEMPT
     Route: 065

REACTIONS (5)
  - Cardiogenic shock [Recovered/Resolved]
  - Intentional overdose [Recovered/Resolved]
  - Cardiomyopathy [Recovered/Resolved]
  - Suicide attempt [Unknown]
  - Cardiac arrest [Recovered/Resolved]
